FAERS Safety Report 4634354-8 (Version None)
Quarter: 2005Q2

REPORT INFORMATION
  Report Type: 
  Country: None (occurrence: None)
  Receive Date: 20050411
  Receipt Date: 20050329
  Transmission Date: 20051028
  Serious: Yes (Hospitalization)
  Sender: FDA-Public Use
  Company Number: 2005050295

PATIENT
  Age: 44 Year
  Sex: Male

DRUGS (7)
  1. ALPRAZOLAM [Suspect]
     Indication: DRUG DEPENDENCE
     Dosage: 0.5 MG (0.5 MG, 1 IN 1 D), ORAL
     Route: 048
     Dates: start: 20050101, end: 20050208
  2. PROPOXYPHENE HCL [Suspect]
     Indication: DRUG DEPENDENCE
     Dosage: 150 MG 9150 MG, 1 IN 1 D), ORAL
     Route: 048
     Dates: start: 20050101
  3. TENOFOVIR (TENOFOVIR) [Concomitant]
  4. NEVIRAPINE [Concomitant]
  5. LOPINAVIR [Concomitant]
  6. RITONAVIR (RITONAVIR) [Concomitant]
  7. FUROSEMIDE [Concomitant]

REACTIONS (2)
  - DRUG SCREEN POSITIVE [None]
  - ENCEPHALOPATHY [None]
